FAERS Safety Report 8873449 (Version 1)
Quarter: 2012Q4

REPORT INFORMATION
  Report Type: 
  Country: US (occurrence: US)
  Receive Date: 20121026
  Receipt Date: 20121026
  Transmission Date: 20130627
  Serious: No
  Sender: FDA-Public Use
  Company Number: US-AMGEN-USASP2012050232

PATIENT
  Age: 55 Year
  Sex: Male
  Weight: 86.17 kg

DRUGS (4)
  1. ENBREL [Suspect]
     Indication: PRODUCT USED FOR UNKNOWN INDICATION
     Dosage: 50 mg, qwk
     Route: 058
  2. LISINOPRIL [Concomitant]
     Dosage: 10 mg, UNK
  3. LIPITOR [Concomitant]
     Dosage: 10 mg, UNK
  4. TRICOR                             /00090101/ [Concomitant]
     Dosage: 48 mg, UNK

REACTIONS (1)
  - Nasal congestion [Unknown]
